FAERS Safety Report 6430654-X (Version None)
Quarter: 2009Q4

REPORT INFORMATION
  Report Type: 
  Country: None (occurrence: None)
  Receive Date: 20091106
  Receipt Date: 20091028
  Transmission Date: 20100525
  Serious: Yes (Other)
  Sender: FDA-Public Use
  Company Number: B0600809A

PATIENT
  Age: 60 Year

DRUGS (2)
  1. ZANTAC [Suspect]
     Indication: DRUG USE FOR UNKNOWN INDICATION
     Route: 048
  2. SELBEX [Concomitant]
     Route: 048

REACTIONS (2)
  - ANGINA PECTORIS [None]
  - PALPITATIONS [None]
